FAERS Safety Report 7325536-5 (Version None)
Quarter: 2011Q1

REPORT INFORMATION
  Report Type: 
  Country: None (occurrence: None)
  Receive Date: 20110302
  Receipt Date: 20110218
  Transmission Date: 20110831
  Serious: Yes (Hospitalization)
  Sender: FDA-Public Use
  Company Number: IT-SANOFI-AVENTIS-2011SA010483

PATIENT
  Age: 80 Year
  Sex: Male

DRUGS (5)
  1. KEPPRA [Concomitant]
     Route: 048
     Dates: start: 20080101
  2. KANRENOL [Suspect]
     Indication: HYPERTENSION
     Route: 048
     Dates: start: 20080101, end: 20110124
  3. NORMIX [Concomitant]
     Route: 048
  4. PORTOLAC [Concomitant]
  5. LASIX [Suspect]
     Indication: HYPERTENSION
     Route: 048
     Dates: start: 20080101, end: 20110124

REACTIONS (1)
  - RENAL FAILURE ACUTE [None]
